FAERS Safety Report 5975373-9 (Version None)
Quarter: 2008Q4

REPORT INFORMATION
  Report Type: 
  Country: None (occurrence: None)
  Receive Date: 20081128
  Receipt Date: 20081119
  Transmission Date: 20090506
  Serious: Yes (Other)
  Sender: FDA-Public Use
  Company Number: 2008SP023751

PATIENT
  Age: 66 Year
  Sex: Female

DRUGS (3)
  1. BETAMETHASONE DIPROPIONATE [Suspect]
     Indication: RHEUMATOID ARTHRITIS
     Dosage: IM
     Route: 030
     Dates: start: 20070417, end: 20080626
  2. HYDROXYCHLOROQUIN [Concomitant]
  3. METHOTREXATE [Concomitant]

REACTIONS (1)
  - ARTERIAL THROMBOSIS [None]
